FAERS Safety Report 15454878 (Version 2)
Quarter: 2018Q4

REPORT INFORMATION
  Report Type: Spontaneous
  Country: US (occurrence: US)
  Receive Date: 20181002
  Receipt Date: 20181004
  Transmission Date: 20190204
  Serious: No
  Sender: FDA-Public Use
  Company Number: US-BAYER-2018-183850

PATIENT
  Age: 1 Year
  Sex: Male
  Weight: 14 kg

DRUGS (2)
  1. CLARITIN [Suspect]
     Active Substance: LORATADINE
     Indication: NASOPHARYNGITIS
  2. CLARITIN [Suspect]
     Active Substance: LORATADINE
     Indication: HYPERSENSITIVITY
     Dosage: 2.5 ML, UNK
     Route: 048
     Dates: start: 20181001

REACTIONS (2)
  - Product administered to patient of inappropriate age [None]
  - Extra dose administered [Recovered/Resolved]

NARRATIVE: CASE EVENT DATE: 20181001
